FAERS Safety Report 14211199 (Version 1)
Quarter: 2017Q4

REPORT INFORMATION
  Report Type: Spontaneous
  Country: GB (occurrence: GB)
  Receive Date: 20171121
  Receipt Date: 20171121
  Transmission Date: 20180321
  Serious: Yes (Other)
  Sender: FDA-Public Use
  Company Number: GB-CELGENEUS-GBR-20171104675

PATIENT

DRUGS (2)
  1. AZACITIDINE. [Suspect]
     Active Substance: AZACITIDINE
     Indication: ACUTE MYELOID LEUKAEMIA
     Dosage: 75 MICROGRAM/SQ. METER
     Route: 065
  2. ROMIDEPSIN. [Suspect]
     Active Substance: ROMIDEPSIN
     Indication: ACUTE MYELOID LEUKAEMIA
     Route: 041

REACTIONS (3)
  - Syncope [Unknown]
  - Lung infection [Unknown]
  - Vomiting [Unknown]
